FAERS Safety Report 21190178 (Version 1)
Quarter: 2022Q3

REPORT INFORMATION
  Report Type: Spontaneous
  Country: US (occurrence: US)
  Receive Date: 20220809
  Receipt Date: 20220809
  Transmission Date: 20221027
  Serious: No
  Sender: FDA-Public Use
  Company Number: US-009507513-2207USA003743

PATIENT
  Age: 17 Year
  Sex: Female

DRUGS (3)
  1. EMEND [Suspect]
     Active Substance: APREPITANT
     Indication: Autonomic nervous system imbalance
     Dosage: UNK
     Route: 048
  2. EMEND [Suspect]
     Active Substance: APREPITANT
     Indication: Gastrointestinal motility disorder
  3. EMEND [Suspect]
     Active Substance: APREPITANT
     Indication: Autoimmune disorder

REACTIONS (1)
  - Product use in unapproved indication [Unknown]
